FAERS Safety Report 7183360-0 (Version None)
Quarter: 2010Q4

REPORT INFORMATION
  Report Type: 
  Country: None (occurrence: None)
  Receive Date: 20101210
  Receipt Date: 20101125
  Transmission Date: 20110411
  Serious: Yes (Hospitalization)
  Sender: FDA-Public Use
  Company Number: AUR-APL-2010-02959

PATIENT
  Age: 40 Year
  Sex: Female

DRUGS (2)
  1. ZOLPIDEM [Suspect]
     Dosage: 10MG
  2. UNSPECIFIED PRENATAL VITAMINS [Concomitant]

REACTIONS (10)
  - AREFLEXIA [None]
  - BRAIN STEM SYNDROME [None]
  - CHEST X-RAY ABNORMAL [None]
  - ELECTROENCEPHALOGRAM ABNORMAL [None]
  - HYPOVENTILATION [None]
  - LOSS OF CONSCIOUSNESS [None]
  - MYDRIASIS [None]
  - OVERDOSE [None]
  - PUPILLARY REFLEX IMPAIRED [None]
  - RESPIRATORY DISORDER [None]
